FAERS Safety Report 4362510-5 (Version None)
Quarter: 2004Q2

REPORT INFORMATION
  Report Type: 
  Country: None (occurrence: None)
  Receive Date: 20040521
  Receipt Date: 20040422
  Transmission Date: 20050107
  Serious: Yes (Other)
  Sender: FDA-Public Use
  Company Number: PHBS2004BE05799

PATIENT
  Age: 42 Year
  Sex: Male

DRUGS (4)
  1. ZOMETA [Suspect]
     Indication: MULTIPLE MYELOMA
     Dosage: 4 MG
     Route: 042
     Dates: start: 20030114
  2. THALIDOMIDE [Concomitant]
     Route: 065
     Dates: start: 20030828
  3. DEXAMETHASONE [Concomitant]
     Route: 065
     Dates: start: 20021118, end: 20030207
  4. CHEMOTHERAPEUTICS,OTHER [Concomitant]
     Route: 065

REACTIONS (13)
  - DYSPHAGIA [None]
  - FIBROUS DYSPLASIA OF BONE [None]
  - GINGIVAL INFECTION [None]
  - MALIGNANT NEOPLASM PROGRESSION [None]
  - MUCOSAL INFLAMMATION [None]
  - NEUTROPENIA [None]
  - OSTEOMYELITIS [None]
  - OSTEONECROSIS [None]
  - PERIPHERAL BLOOD STEM CELL APHERESIS [None]
  - PRIMARY SEQUESTRUM [None]
  - STEM CELL TRANSPLANT [None]
  - TONGUE ULCERATION [None]
  - TOOTH DISORDER [None]
